FAERS Safety Report 6092024-6 (Version None)
Quarter: 2009Q1

REPORT INFORMATION
  Report Type: 
  Country: None (occurrence: None)
  Receive Date: 20090225
  Receipt Date: 20090220
  Transmission Date: 20090719
  Serious: Yes (Death, Hospitalization)
  Sender: FDA-Public Use
  Company Number: US-BIOGENIDEC-2008BI015483

PATIENT
  Age: 39 Year
  Sex: Male
  Weight: 47 kg

DRUGS (1)
  1. AVONEX [Suspect]
     Indication: MULTIPLE SCLEROSIS
     Route: 030
     Dates: start: 20050101

REACTIONS (6)
  - APHAGIA [None]
  - GASTROINTESTINAL DISORDER POSTOPERATIVE [None]
  - MECHANICAL VENTILATION COMPLICATION [None]
  - MULTIPLE SCLEROSIS [None]
  - MYOCARDIAL INFARCTION [None]
  - POST PROCEDURAL COMPLICATION [None]
